FAERS Safety Report 4817509-9 (Version None)
Quarter: 2005Q4

REPORT INFORMATION
  Report Type: 
  Country: None (occurrence: None)
  Receive Date: 20051101
  Receipt Date: 20050414
  Transmission Date: 20060501
  Serious: Yes (Hospitalization)
  Sender: FDA-Public Use
  Company Number: US-MERCK-0504USA02930

PATIENT
  Age: 76 Year
  Sex: Male
  Weight: 73 kg

DRUGS (5)
  1. VIOXX [Suspect]
     Indication: ARTHRALGIA
     Route: 048
     Dates: start: 20030101, end: 20040601
  2. ASPIRIN [Concomitant]
     Route: 048
     Dates: start: 20040101
  3. PROBENECID [Concomitant]
     Route: 048
  4. ASCORBIC ACID [Concomitant]
     Route: 048
  5. VITAMIN E [Concomitant]
     Route: 048

REACTIONS (1)
  - CEREBROVASCULAR ACCIDENT [None]
